FAERS Safety Report 6690292-0 (Version None)
Quarter: 2010Q2

REPORT INFORMATION
  Report Type: 
  Country: None (occurrence: None)
  Receive Date: 20100421
  Receipt Date: 20100409
  Transmission Date: 20101027
  Serious: Yes (Hospitalization)
  Sender: FDA-Public Use
  Company Number: US-JNJCH-2009031649

PATIENT
  Age: 14 Year
  Sex: Female

DRUGS (1)
  1. ASPIRIN [Suspect]
     Indication: RHINORRHOEA
     Dosage: TEXT:TWO TABLETS EVERY FOUR HOURS
     Route: 048

REACTIONS (1)
  - THERAPEUTIC AGENT TOXICITY [None]
